FAERS Safety Report 24436109 (Version 2)
Quarter: 2024Q4

REPORT INFORMATION
  Report Type: Spontaneous
  Country: US (occurrence: US)
  Receive Date: 20241015
  Receipt Date: 20241129
  Transmission Date: 20250115
  Serious: Yes (Other)
  Sender: AMNEAL
  Company Number: US-AMNEAL PHARMACEUTICALS-2024-AMRX-03654

PATIENT

DRUGS (1)
  1. RELEUKO [Suspect]
     Active Substance: FILGRASTIM-AYOW
     Indication: Product used for unknown indication
     Dosage: 480 MCG
     Route: 065

REACTIONS (2)
  - Needle issue [Unknown]
  - No adverse event [Unknown]
